FAERS Safety Report 5575133-7 (Version None)
Quarter: 2007Q4

REPORT INFORMATION
  Report Type: 
  Country: None (occurrence: None)
  Receive Date: 20071227
  Receipt Date: 20071218
  Transmission Date: 20080405
  Serious: Yes (Hospitalization)
  Sender: FDA-Public Use
  Company Number: FR-PFIZER INC-2007107368

PATIENT
  Age: 72 Year
  Sex: Female

DRUGS (1)
  1. TAHOR [Suspect]
     Dosage: FREQ:DAILY
     Route: 048

REACTIONS (1)
  - DERMATOMYOSITIS [None]
